FAERS Safety Report 5729183-8 (Version None)
Quarter: 2008Q2

REPORT INFORMATION
  Report Type: 
  Country: None (occurrence: None)
  Receive Date: 20080506
  Receipt Date: 20080427
  Transmission Date: 20081010
  Serious: Yes (Other)
  Sender: FDA-Public Use
  Company Number: US-PFIZER INC-2008037802

PATIENT
  Sex: Male
  Weight: 93.181 kg

DRUGS (4)
  1. CHANTIX [Suspect]
     Indication: SMOKING CESSATION THERAPY
  2. PROVENTIL GENTLEHALER [Concomitant]
  3. PERCOCET [Concomitant]
  4. HYZAAR [Concomitant]

REACTIONS (2)
  - MENISCUS LESION [None]
  - RASH [None]
